FAERS Safety Report 24285359 (Version 1)
Quarter: 2024Q3

REPORT INFORMATION
  Report Type: Spontaneous
  Country: CA (occurrence: CA)
  Receive Date: 20240905
  Receipt Date: 20240905
  Transmission Date: 20241017
  Serious: Yes (Other)
  Sender: CELLTRION
  Company Number: CA-PFIZER INC-202400246681

PATIENT

DRUGS (3)
  1. INFLECTRA [Suspect]
     Active Substance: INFLIXIMAB-DYYB
     Indication: Crohn^s disease
     Dosage: 600MG OR 10MG/KG AT Q 0,2,6 THEN EVERY 8 WEEKS
     Route: 042
     Dates: start: 20240702
  2. INFLECTRA [Suspect]
     Active Substance: INFLIXIMAB-DYYB
     Dosage: 600 MG AFTER 8 WEEKS( 600MG OR 10MG/KG AT Q 0,2,6 THEN EVERY 8 WEEKS)
     Route: 042
     Dates: start: 20240827
  3. ENTOCORT [Concomitant]
     Active Substance: BUDESONIDE
     Dosage: UNK

REACTIONS (4)
  - Pain in extremity [Unknown]
  - Inflammation [Unknown]
  - Arthralgia [Not Recovered/Not Resolved]
  - Hypotension [Unknown]

NARRATIVE: CASE EVENT DATE: 20240101
